FAERS Safety Report 9878586 (Version 4)
Quarter: 2014Q2

REPORT INFORMATION
  Report Type: Report from Study
  Country: AU (occurrence: AU)
  Receive Date: 20140206
  Receipt Date: 20140617
  Transmission Date: 20141212
  Serious: Yes (Hospitalization)
  Sender: FDA-Public Use
  Company Number: AU-ROCHE-1341438

PATIENT
  Age: 91 Year
  Sex: Male
  Weight: 83.3 kg

DRUGS (11)
  1. VISMODEGIB [Suspect]
     Indication: BASAL CELL CARCINOMA
     Dosage: MOST RECENT DOSE PRIOR TO EVENT: 24/JAN/2014
     Route: 048
     Dates: start: 20130809
  2. NORVASC [Suspect]
     Indication: HYPERTENSION
     Route: 065
     Dates: start: 2000
  3. NORVASC [Suspect]
     Route: 065
     Dates: start: 201112, end: 20140125
  4. WARFARIN [Concomitant]
     Indication: ATRIAL FIBRILLATION
     Dosage: DAILY DOSE REPORTED AS 2MG/TAB, 2 1/2 TABS
     Route: 065
     Dates: start: 201112
  5. MINAX [Concomitant]
     Indication: HYPERTENSION
     Route: 065
     Dates: start: 201112
  6. OSTELIN (AUSTRALIA) [Concomitant]
     Indication: VITAMIN D DEFICIENCY
     Dosage: DOSE: 25MCQ
     Route: 065
  7. PANAMAX [Concomitant]
     Indication: ARTHRITIS
     Route: 065
     Dates: start: 201212
  8. LIPEX (SIMVASTATIN) [Concomitant]
     Indication: HYPERCHOLESTEROLAEMIA
  9. BACLOFEN [Concomitant]
     Indication: MUSCLE SPASMS
     Route: 065
     Dates: start: 201309, end: 20131031
  10. BACLOFEN [Concomitant]
     Dosage: TOTAL DAILY DOSE: 22.5G TID PRN.
     Route: 065
     Dates: start: 20131101
  11. COLOXYL TABLETS (AUSTRALIA) [Concomitant]
     Indication: CONSTIPATION
     Route: 065
     Dates: start: 20140120

REACTIONS (1)
  - Orthostatic hypotension [Recovered/Resolved]
